FAERS Safety Report 17263366 (Version 5)
Quarter: 2021Q1

REPORT INFORMATION
  Report Type: Other
  Country: US (occurrence: US)
  Receive Date: 20200113
  Receipt Date: 20210322
  Transmission Date: 20210419
  Serious: Yes (Life-Threatening, Other)
  Sender: FDA-Public Use
  Company Number: US-ROCHE-2516709

PATIENT

DRUGS (4)
  1. GEMCITABINE. [Suspect]
     Active Substance: GEMCITABINE
     Indication: B-CELL LYMPHOMA
     Dosage: RECEIVE 8 BI?WEEKLY CYCLES
     Route: 065
  2. NIVOLUMAB [Suspect]
     Active Substance: NIVOLUMAB
     Indication: B-CELL LYMPHOMA
     Dosage: 3 MG/KG WAS GIVEN EVERY TWO WEEKS FOR A TOTAL OF 26 APPLICATIONS OR UNTIL PROGRESSION.
     Route: 065
  3. RITUXIMAB. [Suspect]
     Active Substance: RITUXIMAB
     Indication: B-CELL LYMPHOMA
     Dosage: DAY 1 OF EACH CYCLE
     Route: 065
  4. OXALIPLATIN. [Suspect]
     Active Substance: OXALIPLATIN
     Indication: B-CELL LYMPHOMA
     Dosage: RECEIVE 8 BI?WEEKLY CYCLES
     Route: 065

REACTIONS (22)
  - Pruritus [Unknown]
  - Infusion related reaction [Unknown]
  - Neutropenia [Unknown]
  - Thrombocytopenia [Unknown]
  - Gastrointestinal haemorrhage [Unknown]
  - Renal failure [Unknown]
  - Gamma-glutamyltransferase increased [Unknown]
  - Infection [Unknown]
  - Tumour lysis syndrome [Unknown]
  - Rash [Unknown]
  - Peripheral sensory neuropathy [Unknown]
  - Hypertension [Unknown]
  - Anaemia [Unknown]
  - Lipase increased [Unknown]
  - Hyperglycaemia [Unknown]
  - Central nervous system vasculitis [Unknown]
  - Sepsis [Unknown]
  - Back pain [Unknown]
  - Leukopenia [Unknown]
  - Gastric perforation [Unknown]
  - Lymphopenia [Unknown]
  - Syncope [Unknown]
